FAERS Safety Report 12714540 (Version 1)
Quarter: 2016Q3

REPORT INFORMATION
  Report Type: Spontaneous
  Country: PL (occurrence: PL)
  Receive Date: 20160905
  Receipt Date: 20160905
  Transmission Date: 20161109
  Serious: Yes (Other)
  Sender: FDA-Public Use
  Company Number: PL-BAUSCH-BL-2016-021413

PATIENT
  Age: 69 Year
  Sex: Female

DRUGS (2)
  1. SALOFALK [Concomitant]
     Active Substance: MESALAMINE
     Indication: PRODUCT USED FOR UNKNOWN INDICATION
  2. XIFAXAN [Suspect]
     Active Substance: RIFAXIMIN
     Indication: DIARRHOEA
     Dosage: IN THE MORNING
     Route: 048
     Dates: start: 20160822

REACTIONS (9)
  - Dizziness [Unknown]
  - Pruritus generalised [Not Recovered/Not Resolved]
  - Erythema [Unknown]
  - Chills [Not Recovered/Not Resolved]
  - Chest pain [Unknown]
  - Eye swelling [Recovering/Resolving]
  - Hypoaesthesia [Unknown]
  - Palpitations [Unknown]
  - Vomiting [Unknown]

NARRATIVE: CASE EVENT DATE: 20160822
